FAERS Safety Report 10415508 (Version 1)
Quarter: 2014Q2

REPORT INFORMATION
  Report Type: Spontaneous
  Country: US (occurrence: None)
  Receive Date: 20140604
  Receipt Date: 20140604
  Transmission Date: 20141212
  Serious: No
  Sender: FDA-Public Use
  Company Number: 163-POMAL-14020468

PATIENT
  Age: 70 Year
  Sex: Female
  Weight: 80.7 kg

DRUGS (5)
  1. POMALYST [Suspect]
     Indication: PLASMA CELL MYELOMA
     Route: 048
     Dates: start: 201311
  2. MULTIVITAMINS [Concomitant]
  3. VITAMIN D3 [Concomitant]
  4. VITACAL [Concomitant]
  5. VITAMIN B12 [Concomitant]

REACTIONS (2)
  - Blood cholesterol increased [None]
  - Laryngitis [None]
